FAERS Safety Report 17932871 (Version 1)
Quarter: 2020Q2

REPORT INFORMATION
  Report Type: Spontaneous
  Country: DE (occurrence: DE)
  Receive Date: 20200623
  Receipt Date: 20200623
  Transmission Date: 20200714
  Serious: Yes (Life-Threatening, Hospitalization, Other)
  Sender: FDA-Public Use
  Company Number: DE-PFIZER INC-2020240577

PATIENT
  Age: 79 Year
  Sex: Female

DRUGS (13)
  1. METAMIZOL [Suspect]
     Active Substance: METAMIZOLE SODIUM
     Dosage: 500 MG, 4X/DAY
  2. METHOTREXATE SODIUM. [Suspect]
     Active Substance: METHOTREXATE SODIUM
     Dosage: 15 MG, WEEKLY
  3. COLECALCIFEROL [Concomitant]
     Active Substance: CHOLECALCIFEROL
     Dosage: 20000 IU, WEEKLY
  4. RAMIPRIL. [Concomitant]
     Active Substance: RAMIPRIL
     Dosage: 2.5 MG, 1X/DAY
  5. MARCUMAR [Concomitant]
     Active Substance: PHENPROCOUMON
     Dosage: 3 MG, ACCORDING TO PLAN
  6. FOLSAEURE [Concomitant]
     Active Substance: FOLIC ACID
     Dosage: 0.4 MG, WEEKLY
  7. SIMVASTATIN. [Concomitant]
     Active Substance: SIMVASTATIN
     Dosage: 40 MG, 1X/DAY
  8. NALOXONE/TILIDINE [Concomitant]
     Active Substance: NALOXONE HYDROCHLORIDE\TILIDINE HYDROCHLORIDE
     Dosage: UNK, 2X/DAY
  9. NITRENDIPIN [Concomitant]
     Active Substance: NITRENDIPINE
     Dosage: 10 MG, AS NEEDED
  10. MAGNEROT N [Concomitant]
     Dosage: 1 DF, 2X/DAY
  11. BISOPROLOL [Concomitant]
     Active Substance: BISOPROLOL
     Dosage: 5 MG, 2X/DAY
  12. CALCIUM DURA [Concomitant]
     Dosage: 1 DF, 1X/DAY
  13. PANTOPRAZOL [PANTOPRAZOLE] [Concomitant]
     Active Substance: PANTOPRAZOLE
     Dosage: 20 MG, ALTERNATE DAY (EVERY SECOND DAY MORNINGS 1 TABLET)

REACTIONS (3)
  - Leukopenia [Unknown]
  - Diarrhoea [Unknown]
  - General physical health deterioration [Unknown]
